FAERS Safety Report 17048729 (Version 1)
Quarter: 2019Q4

REPORT INFORMATION
  Report Type: Spontaneous
  Country: FR (occurrence: FR)
  Receive Date: 20191119
  Receipt Date: 20191119
  Transmission Date: 20200122
  Serious: Yes (Death, Other)
  Sender: FDA-Public Use
  Company Number: FR-SA-2019SA320639

PATIENT
  Age: 59 Year
  Sex: Male

DRUGS (1)
  1. ALPROLIX [Suspect]
     Active Substance: EFTRENONACOG ALFA
     Indication: FACTOR IX DEFICIENCY
     Dosage: UNK UNK, UNK
     Route: 065
     Dates: start: 201803

REACTIONS (2)
  - Surgery [Unknown]
  - Death [Fatal]

NARRATIVE: CASE EVENT DATE: 201901
